FAERS Safety Report 16981033 (Version 2)
Quarter: 2019Q4

REPORT INFORMATION
  Report Type: Spontaneous
  Country: JP (occurrence: JP)
  Receive Date: 20191031
  Receipt Date: 20191112
  Transmission Date: 20200122
  Serious: Yes (Other)
  Sender: FDA-Public Use
  Company Number: JP-NAPPMUNDI-GBR-2019-0070781

PATIENT
  Sex: Male

DRUGS (2)
  1. MOHRUS [Concomitant]
     Active Substance: KETOPROFEN
  2. NORSPAN [Suspect]
     Active Substance: BUPRENORPHINE
     Indication: PAIN
     Dosage: 20 MCG, Q1H (STRENGTH 20 MG)
     Route: 062

REACTIONS (5)
  - Wrong technique in product usage process [Unknown]
  - Mental disorder [Unknown]
  - Somnambulism [Unknown]
  - Thinking abnormal [Unknown]
  - Product adhesion issue [Unknown]
